FAERS Safety Report 12367266 (Version 2)
Quarter: 2016Q2

REPORT INFORMATION
  Report Type: Spontaneous
  Country: US (occurrence: US)
  Receive Date: 20160513
  Receipt Date: 20160603
  Transmission Date: 20160815
  Serious: Yes (Other)
  Sender: FDA-Public Use
  Company Number: US-JNJFOC-20160400214

PATIENT
  Sex: Male

DRUGS (2)
  1. INVEGA TRINZA [Suspect]
     Active Substance: PALIPERIDONE PALMITATE
     Indication: SCHIZOPHRENIA
     Route: 030
  2. INVEGA TRINZA [Suspect]
     Active Substance: PALIPERIDONE PALMITATE
     Indication: SCHIZOPHRENIA
     Dosage: EARLIER THAN 12 WEEKS
     Route: 030
     Dates: end: 2016

REACTIONS (3)
  - Schizophrenia [Not Recovered/Not Resolved]
  - Off label use [Unknown]
  - Inappropriate schedule of drug administration [Unknown]
